FAERS Safety Report 5838994-X (Version None)
Quarter: 2008Q3

REPORT INFORMATION
  Report Type: 
  Country: None (occurrence: None)
  Receive Date: 20080808
  Receipt Date: 20080724
  Transmission Date: 20090109
  Serious: No
  Sender: FDA-Public Use
  Company Number: US-BOEHRINGER INGELHEIM GMBH, GERMANY-2008-BP-11607BP

PATIENT
  Age: 71 Year
  Sex: Male

DRUGS (1)
  1. ZANTAC 75 [Suspect]
     Indication: GASTROOESOPHAGEAL REFLUX DISEASE
     Route: 048
     Dates: start: 20080601, end: 20080721

REACTIONS (7)
  - DYSPHONIA [None]
  - GLOSSODYNIA [None]
  - JAW DISORDER [None]
  - OROPHARYNGEAL PAIN [None]
  - SALIVA ALTERED [None]
  - SALIVARY GLAND DISORDER [None]
  - SWELLING FACE [None]
